FAERS Safety Report 4292241-1 (Version None)
Quarter: 2004Q1

REPORT INFORMATION
  Report Type: 
  Country: None (occurrence: None)
  Receive Date: 20040211
  Receipt Date: 20040205
  Transmission Date: 20041129
  Serious: Yes (Other)
  Sender: FDA-Public Use
  Company Number: US-GLAXOSMITHKLINE-A0496775A

PATIENT
  Age: 50 Year
  Sex: Male

DRUGS (1)
  1. AUGMENTIN '125' [Suspect]
     Dosage: 1000MG TWICE PER DAY
     Route: 048

REACTIONS (2)
  - ANAPHYLACTIC REACTION [None]
  - OROPHARYNGEAL SWELLING [None]
